FAERS Safety Report 8159931-1 (Version None)
Quarter: 2012Q1

REPORT INFORMATION
  Report Type: 
  Country: None (occurrence: None)
  Receive Date: 20120223
  Receipt Date: 20120214
  Transmission Date: 20120608
  Serious: Yes (Hospitalization)
  Sender: FDA-Public Use
  Company Number: JP-EISAI INC-E7389-01346-SPO-JP

PATIENT
  Sex: Female
  Weight: 41 kg

DRUGS (22)
  1. HALAVEN [Suspect]
     Indication: METASTASES TO LUNG
     Route: 041
     Dates: start: 20110905, end: 20111114
  2. PROCHLORPERAZINE [Concomitant]
     Route: 048
     Dates: start: 20110801, end: 20110901
  3. MORPHINE HYDROCHLORIDE HYDRATE [Concomitant]
     Route: 048
  4. MORPHINE SULFATE [Concomitant]
     Indication: CANCER PAIN
     Route: 048
     Dates: start: 20110730, end: 20110830
  5. MAGNESIUM OXIDE [Concomitant]
     Indication: CONSTIPATION
     Route: 048
     Dates: start: 20110709
  6. LASIX [Concomitant]
     Indication: OEDEMA
     Route: 048
     Dates: start: 20110722
  7. LANSOPRAZOLE [Concomitant]
     Route: 048
     Dates: start: 20110620
  8. NAPROXEN [Concomitant]
     Route: 048
     Dates: start: 20110708, end: 20110901
  9. RABEPRAZOLE SODIUM [Concomitant]
     Indication: PROPHYLAXIS
     Route: 048
  10. CELECOXIB [Concomitant]
     Route: 048
  11. HALAVEN [Suspect]
     Indication: BREAST CANCER RECURRENT
     Route: 041
     Dates: start: 20110722, end: 20110815
  12. HALAVEN [Suspect]
     Indication: METASTASES TO LIVER
  13. LANSOPRAZOLE [Concomitant]
     Indication: PROPHYLAXIS
  14. BETAMETHASONE [Concomitant]
     Indication: CACHEXIA
     Route: 048
     Dates: start: 20110610, end: 20110821
  15. DEPAS [Concomitant]
     Route: 048
  16. NEW LECICARBON SUPPLEMENT [Concomitant]
     Indication: CONSTIPATION
     Route: 065
     Dates: start: 20110826
  17. NEW LECICARBON SUPPLEMENT [Concomitant]
     Route: 065
     Dates: start: 20110805, end: 20110815
  18. OXYCONTIN [Concomitant]
     Route: 048
  19. DECADRON [Suspect]
     Indication: PROPHYLAXIS
  20. PURSENID [Concomitant]
     Indication: CONSTIPATION
     Route: 048
     Dates: start: 20110801
  21. SULFAMETHOXAZOLE [Concomitant]
     Indication: PROPHYLAXIS
     Route: 048
  22. DECADRON [Suspect]
     Route: 042
     Dates: start: 20110615, end: 20110905

REACTIONS (4)
  - OBSTRUCTIVE AIRWAYS DISORDER [None]
  - PNEUMOCYSTIS JIROVECI PNEUMONIA [None]
  - NAUSEA [None]
  - PYREXIA [None]
